FAERS Safety Report 10956915 (Version 1)
Quarter: 2015Q1

REPORT INFORMATION
  Report Type: Spontaneous
  Country: NL (occurrence: NL)
  Receive Date: 20150326
  Receipt Date: 20150326
  Transmission Date: 20150721
  Serious: Yes (Hospitalization, Other)
  Sender: FDA-Public Use
  Company Number: NL-CELGENE-NLD-2015034513

PATIENT
  Age: 78 Year
  Sex: Male

DRUGS (1)
  1. AZACITIDINE INJECTABLE [Suspect]
     Active Substance: AZACITIDINE
     Indication: MYELODYSPLASTIC SYNDROME
     Route: 065
     Dates: start: 201402

REACTIONS (3)
  - Atypical pneumonia [Recovered/Resolved]
  - Monocytopenia [Recovered/Resolved]
  - Alveolar proteinosis [Recovered/Resolved]
